FAERS Safety Report 10161868 (Version 2)
Quarter: 2014Q2

REPORT INFORMATION
  Report Type: Report from Study
  Country: US (occurrence: US)
  Receive Date: 20140509
  Receipt Date: 20140520
  Transmission Date: 20141212
  Serious: Yes (Other)
  Sender: FDA-Public Use
  Company Number: US-JNJFOC-20140500614

PATIENT
  Sex: Male
  Weight: 132.45 kg

DRUGS (11)
  1. INVOKANA [Suspect]
     Indication: TYPE 2 DIABETES MELLITUS
     Route: 048
     Dates: start: 20140428
  2. INVOKANA [Suspect]
     Indication: TYPE 2 DIABETES MELLITUS
     Route: 048
     Dates: start: 2014, end: 2014
  3. ENABLEX [Concomitant]
     Indication: HYPOAESTHESIA
     Dates: start: 2008
  4. CRESTOR [Concomitant]
     Indication: CARDIAC DISORDER
     Route: 048
     Dates: start: 1992
  5. JANUVIA [Concomitant]
     Indication: TYPE 2 DIABETES MELLITUS
     Route: 048
     Dates: start: 2011
  6. LEXAPRO [Concomitant]
     Indication: CARDIAC DISORDER
     Route: 048
     Dates: start: 2008
  7. POTASSIUM CHLORIDE [Concomitant]
     Indication: BLOOD POTASSIUM DECREASED
     Dates: start: 2008
  8. LISINOPRIL [Concomitant]
     Indication: PRODUCT USED FOR UNKNOWN INDICATION
     Dates: start: 2008
  9. CLOPIDOGREL [Concomitant]
     Indication: CORONARY ARTERIAL STENT INSERTION
     Route: 048
     Dates: start: 2010
  10. RAPAFLO [Concomitant]
     Dates: start: 2008
  11. LANTUS [Concomitant]
     Route: 058
     Dates: start: 1992

REACTIONS (1)
  - Abnormal loss of weight [Not Recovered/Not Resolved]
